FAERS Safety Report 6710144-7 (Version None)
Quarter: 2010Q2

REPORT INFORMATION
  Report Type: 
  Country: None (occurrence: None)
  Receive Date: 20100504
  Receipt Date: 20100430
  Transmission Date: 20101027
  Serious: Yes (Death, Other)
  Sender: FDA-Public Use
  Company Number: PL-BRISTOL-MYERS SQUIBB COMPANY-14904296

PATIENT

DRUGS (3)
  1. REYATAZ [Suspect]
     Dosage: 2 CAPS/D; FROM 12JAN2009 300MG 1 CAPS/D
     Route: 064
     Dates: start: 20080728
  2. TRUVADA [Suspect]
     Route: 064
     Dates: start: 20080728
  3. NORVIR [Suspect]
     Route: 064
     Dates: start: 20080728

REACTIONS (8)
  - DEATH NEONATAL [None]
  - HAEMORRHAGE INTRACRANIAL [None]
  - MATERNAL DRUGS AFFECTING FOETUS [None]
  - NEONATAL PNEUMONIA [None]
  - PNEUMONIA [None]
  - PNEUMOTHORAX [None]
  - PREMATURE BABY [None]
  - RESPIRATORY FAILURE [None]
